FAERS Safety Report 5152299-4 (Version None)
Quarter: 2006Q4

REPORT INFORMATION
  Report Type: 
  Country: None (occurrence: None)
  Receive Date: 20061116
  Receipt Date: 20061103
  Transmission Date: 20070319
  Serious: Yes (Other)
  Sender: FDA-Public Use
  Company Number: CA-AVENTIS-200621506GDDC

PATIENT
  Age: 78 Year
  Sex: Female

DRUGS (17)
  1. FLAGYL [Suspect]
     Route: 048
  2. MAGNESIUM OXIDE [Concomitant]
     Route: 048
  3. FLUTICASONE PROPIONATE [Concomitant]
     Dosage: DOSE: 2 DOSAGE FORM
     Route: 055
  4. AMLODIPINE [Concomitant]
     Dosage: DOSE: 7.5 MG
     Route: 048
  5. CHOLESTYRAMINE [Concomitant]
     Dosage: DOSE: 1 DOSAGE FORM
     Route: 048
  6. AVEENO BATH [Concomitant]
     Dosage: DOSE: 1 DOSAGE FORM
     Route: 061
  7. CALAMINE                           /00138501/ [Concomitant]
     Dosage: DOSE: 1 DOSAGE FORM
     Route: 061
  8. LOPERAMIDE [Concomitant]
     Route: 048
  9. DIBUCAINE [Concomitant]
     Route: 061
  10. PREDNISONE TAB [Concomitant]
  11. LAXATIVES [Concomitant]
     Dosage: DOSE: 1 DOSAGE FORM
  12. ACETAMINOPHEN [Concomitant]
     Route: 048
  13. IPRATROPIUM BROMIDE [Concomitant]
     Dosage: DOSE: 2 DOSAGE FORM
     Route: 055
  14. DIPHENHYDRAMINE HCL [Concomitant]
     Route: 030
  15. DIOVOL                             /00018101/ [Concomitant]
  16. FUROSEMIDE [Concomitant]
     Route: 048
  17. VITAMIN CAP [Concomitant]
     Dosage: DOSE: 1 DOSAGE FORM
     Route: 048

REACTIONS (5)
  - FEELING HOT [None]
  - OEDEMA [None]
  - PRURITUS [None]
  - RASH MACULO-PAPULAR [None]
  - URTICARIA [None]
